FAERS Safety Report 7830596-9 (Version None)
Quarter: 2011Q4

REPORT INFORMATION
  Report Type: 
  Country: None (occurrence: None)
  Receive Date: 20111021
  Receipt Date: 20111014
  Transmission Date: 20120403
  Serious: Yes (Other)
  Sender: FDA-Public Use
  Company Number: US-PFIZER INC-2011248628

PATIENT
  Sex: Female

DRUGS (2)
  1. TOVIAZ [Suspect]
     Dosage: UNK
  2. DARIFENACIN [Suspect]

REACTIONS (2)
  - FALL [None]
  - LOSS OF CONSCIOUSNESS [None]
